FAERS Safety Report 9708354 (Version 1)
Quarter: 2013Q4

REPORT INFORMATION
  Report Type: Spontaneous
  Country: US (occurrence: US)
  Receive Date: 20131125
  Receipt Date: 20131125
  Transmission Date: 20140711
  Serious: Yes (Other)
  Sender: FDA-Public Use
  Company Number: US-PFIZER INC-2013333904

PATIENT
  Age: 76 Year
  Sex: Female

DRUGS (1)
  1. FELDENE [Suspect]
     Indication: ARTHRITIS
     Dosage: UNK

REACTIONS (1)
  - Haemorrhage [Unknown]
